FAERS Safety Report 17957731 (Version 1)
Quarter: 2020Q2

REPORT INFORMATION
  Report Type: Spontaneous
  Country: US (occurrence: US)
  Receive Date: 20200629
  Receipt Date: 20200629
  Transmission Date: 20200714
  Serious: No
  Sender: FDA-Public Use
  Company Number: US-PFIZER INC-2020239197

PATIENT
  Age: 22 Year
  Sex: Female

DRUGS (3)
  1. GENOTROPIN MQ [Suspect]
     Active Substance: SOMATROPIN
     Indication: DIABETES MELLITUS INADEQUATE CONTROL
     Dosage: 1 MG, DAILY (7 DAYS A WEEK/1.0MG BY INJECTION EVERY DAY)
     Dates: start: 20120611
  2. GENOTROPIN MQ [Suspect]
     Active Substance: SOMATROPIN
     Indication: INSULIN RESISTANCE
  3. GENOTROPIN MQ [Suspect]
     Active Substance: SOMATROPIN
     Indication: AUTOIMMUNE THYROIDITIS

REACTIONS (3)
  - Off label use [Unknown]
  - Product use in unapproved indication [Unknown]
  - Migraine [Unknown]

NARRATIVE: CASE EVENT DATE: 20120611
